FAERS Safety Report 12187564 (Version 1)
Quarter: 2016Q1

REPORT INFORMATION
  Report Type: Spontaneous
  Country: KR (occurrence: KR)
  Receive Date: 20160317
  Receipt Date: 20160317
  Transmission Date: 20160526
  Serious: Yes (Death, Other)
  Sender: FDA-Public Use
  Company Number: KR-MALLINCKRODT-T201600924

PATIENT
  Age: 1 Day
  Sex: Male
  Weight: 3 kg

DRUGS (10)
  1. UBACILLIN [Concomitant]
     Indication: ANTIBIOTIC THERAPY
     Dosage: 50 MG/KG
     Route: 042
     Dates: start: 201603, end: 201603
  2. GENTAMICIN. [Concomitant]
     Active Substance: GENTAMICIN
     Indication: ANTIBIOTIC THERAPY
     Dosage: 4 MG/KG
     Route: 042
     Dates: start: 201603, end: 201603
  3. TRIZELE [Concomitant]
     Active Substance: METRONIDAZOLE
     Indication: ANTIBIOTIC THERAPY
     Dosage: 7.5 MG/KG
     Route: 042
     Dates: start: 201603, end: 201603
  4. PHENOBARBITAL. [Concomitant]
     Active Substance: PHENOBARBITAL
     Indication: EPILEPSY
     Dosage: 5 MG/KG
     Route: 042
     Dates: start: 201603, end: 201603
  5. ATIVAN [Concomitant]
     Active Substance: LORAZEPAM
     Indication: EPILEPSY
     Dosage: 0.1 MG/KG
     Route: 042
     Dates: start: 201603, end: 201603
  6. CORTISOLU [Concomitant]
     Active Substance: HYDROCORTISONE SODIUM SUCCINATE
     Dosage: 3 MG/KG
     Route: 042
     Dates: start: 201603, end: 201603
  7. VENTAVIS [Concomitant]
     Active Substance: ILOPROST
     Dosage: 0.0005 MG/KG
     Dates: start: 201603, end: 201603
  8. INOMAX [Suspect]
     Active Substance: NITRIC OXIDE
     Indication: PULMONARY HYPERTENSION
     Dosage: 20 PPM, CONTINUOUS
     Dates: start: 20160304, end: 20160304
  9. INOMAX [Suspect]
     Active Substance: NITRIC OXIDE
     Dosage: 15 PPM, CONTINUOUS
     Dates: start: 20160304, end: 20160304
  10. CURAN [Concomitant]
     Indication: GASTROINTESTINAL DISORDER
     Dosage: 4.5 MG/KG
     Route: 042
     Dates: start: 201603, end: 201603

REACTIONS (4)
  - Drug ineffective for unapproved indication [Unknown]
  - Persistent foetal circulation [Fatal]
  - Hypoxia [Fatal]
  - Cardiac failure [Not Recovered/Not Resolved]

NARRATIVE: CASE EVENT DATE: 20160304
